APPROVED DRUG PRODUCT: EMZAHH
Active Ingredient: NORETHINDRONE
Strength: 0.35MG
Dosage Form/Route: TABLET;ORAL-28
Application: A216796 | Product #001 | TE Code: AB2
Applicant: AUROBINDO PHARMA LTD
Approved: Jan 6, 2023 | RLD: No | RS: No | Type: RX